FAERS Safety Report 4933430-X (Version None)
Quarter: 2006Q1

REPORT INFORMATION
  Report Type: 
  Country: None (occurrence: None)
  Receive Date: 20060306
  Receipt Date: 20060215
  Transmission Date: 20060701
  Serious: Yes (Other)
  Sender: FDA-Public Use
  Company Number: KE-GLAXOSMITHKLINE-B0411804A

PATIENT
  Age: 29 Year
  Sex: Female

DRUGS (2)
  1. COMBIVIR [Suspect]
     Indication: ANTIVIRAL PROPHYLAXIS
     Dosage: 1TAB TWICE PER DAY
     Route: 048
     Dates: start: 20051130
  2. NEVIRAPINE [Suspect]
     Indication: ANTIVIRAL PROPHYLAXIS
     Dosage: 200MG SEE DOSAGE TEXT
     Route: 048
     Dates: start: 20051130

REACTIONS (7)
  - ANAEMIA [None]
  - ANOREXIA [None]
  - HEADACHE [None]
  - MALARIA [None]
  - PALLOR [None]
  - PYREXIA [None]
  - RESPIRATORY RATE INCREASED [None]
